FAERS Safety Report 11660476 (Version 7)
Quarter: 2016Q1

REPORT INFORMATION
  Report Type: Report from Study
  Country: US (occurrence: US)
  Receive Date: 20151026
  Receipt Date: 20160111
  Transmission Date: 20160525
  Serious: Yes (Other)
  Sender: FDA-Public Use
  Company Number: US-AMGEN-USASL2015110451

PATIENT
  Age: 68 Year
  Sex: Female
  Weight: 58.96 kg

DRUGS (3)
  1. OXYCODONE [Concomitant]
     Active Substance: OXYCODONE
     Indication: PAIN
     Dosage: 10 MG, UNK
     Route: 048
  2. PREDNISONE. [Concomitant]
     Active Substance: PREDNISONE
     Indication: RHEUMATOID ARTHRITIS
     Dosage: 10 MG, UNK
     Route: 048
  3. ENBREL [Suspect]
     Active Substance: ETANERCEPT
     Indication: RHEUMATOID ARTHRITIS
     Dosage: 50 MG, ONCE A WEEK
     Route: 058
     Dates: start: 20151006

REACTIONS (10)
  - Pain in extremity [Unknown]
  - Laryngitis [Unknown]
  - Paralysis [Unknown]
  - Activities of daily living impaired [Unknown]
  - Nasopharyngitis [Unknown]
  - Malaise [Unknown]
  - Condition aggravated [Unknown]
  - Paraesthesia [Recovered/Resolved]
  - Grip strength decreased [Unknown]
  - Drug dose omission [Unknown]

NARRATIVE: CASE EVENT DATE: 2015
